FAERS Safety Report 20221588 (Version 1)
Quarter: 2021Q4

REPORT INFORMATION
  Report Type: Spontaneous
  Country: US (occurrence: US)
  Receive Date: 20211223
  Receipt Date: 20211223
  Transmission Date: 20220303
  Serious: Yes (Death, Hospitalization, Other)
  Sender: FDA-Public Use
  Company Number: US-Hikma Pharmaceuticals USA Inc.-US-H14001-21-05395

PATIENT
  Age: 59 Year
  Sex: Male

DRUGS (5)
  1. ETOPOSIDE [Suspect]
     Active Substance: ETOPOSIDE
     Indication: Enteropathy-associated T-cell lymphoma
     Dosage: UNKNOWN
     Route: 065
  2. DOXORUBICIN [Suspect]
     Active Substance: DOXORUBICIN
     Indication: Enteropathy-associated T-cell lymphoma
     Dosage: UNKNOWN
     Route: 065
  3. PREDNISONE [Suspect]
     Active Substance: PREDNISONE
     Indication: Enteropathy-associated T-cell lymphoma
     Dosage: UNKNOWN
     Route: 065
  4. VINCRISTINE [Suspect]
     Active Substance: VINCRISTINE
     Indication: Enteropathy-associated T-cell lymphoma
     Dosage: UNKNOWN
     Route: 065
  5. CYCLOPHOSPHAMIDE [Suspect]
     Active Substance: CYCLOPHOSPHAMIDE
     Indication: Enteropathy-associated T-cell lymphoma
     Dosage: UNKNOWN
     Route: 065

REACTIONS (6)
  - Abdominal distension [Fatal]
  - Hypotension [Fatal]
  - Renal failure [Fatal]
  - Tumour lysis syndrome [Fatal]
  - Enteropathy-associated T-cell lymphoma [Fatal]
  - Condition aggravated [Fatal]
